FAERS Safety Report 7031985-5 (Version None)
Quarter: 2010Q4

REPORT INFORMATION
  Report Type: 
  Country: None (occurrence: None)
  Receive Date: 20101005
  Receipt Date: 20100924
  Transmission Date: 20110411
  Serious: Yes (Other)
  Sender: FDA-Public Use
  Company Number: 709251

PATIENT
  Age: 63 Year
  Sex: Male

DRUGS (7)
  1. GENTAMICIN SULFATE [Suspect]
     Indication: ANTIBIOTIC PROPHYLAXIS
     Dosage: INTRAVENOUS
     Route: 042
  2. (FLUCLOXACILLIN) [Suspect]
     Indication: ANTIBIOTIC PROPHYLAXIS
     Dosage: INTRAVENOUS
     Route: 042
  3. (TINZAPARIN) [Concomitant]
  4. WARFARIN SODIUM [Concomitant]
  5. (TAZOCIN) [Concomitant]
  6. ASPIRIN [Concomitant]
  7. HEPARIN [Concomitant]

REACTIONS (5)
  - ATRIAL FIBRILLATION [None]
  - HYPOTENSION [None]
  - POROKERATOSIS [None]
  - PULMONARY EMBOLISM [None]
  - STRESS [None]
